APPROVED DRUG PRODUCT: NASAREL
Active Ingredient: FLUNISOLIDE
Strength: 0.029MG/SPRAY
Dosage Form/Route: SPRAY, METERED;NASAL
Application: N020409 | Product #001
Applicant: TEVA BRANDED PHARMACEUTICAL PRODUCTS R AND D INC
Approved: Mar 8, 1995 | RLD: No | RS: No | Type: DISCN